FAERS Safety Report 9116299 (Version 2)
Quarter: 2013Q1

REPORT INFORMATION
  Report Type: Spontaneous
  Country: US (occurrence: US)
  Receive Date: 20130225
  Receipt Date: 20130322
  Transmission Date: 20140127
  Serious: No
  Sender: FDA-Public Use
  Company Number: US-009507513-1302USA008953

PATIENT
  Age: 54 Year
  Sex: Male
  Weight: 88.44 kg

DRUGS (3)
  1. VICTRELIS [Suspect]
     Dosage: 800 MG, TID
     Route: 048
  2. REBETOL [Suspect]
     Route: 048
  3. PEGASYS [Suspect]

REACTIONS (6)
  - Blood test abnormal [Unknown]
  - Throat irritation [Unknown]
  - Influenza like illness [Unknown]
  - Increased upper airway secretion [Unknown]
  - Fatigue [Unknown]
  - Asthenia [Unknown]
